FAERS Safety Report 15333652 (Version 1)
Quarter: 2018Q3

REPORT INFORMATION
  Report Type: Spontaneous
  Country: US (occurrence: US)
  Receive Date: 20180830
  Receipt Date: 20180830
  Transmission Date: 20181010
  Serious: No
  Sender: FDA-Public Use
  Company Number: US-SA-2018SA234928

PATIENT
  Age: 9 Year
  Sex: Male
  Weight: 28.93 kg

DRUGS (15)
  1. DIPHENHYDRAMINE. [Concomitant]
     Active Substance: DIPHENHYDRAMINE
     Indication: ANAPHYLACTIC REACTION
     Dosage: 25 MG, PRN
     Route: 048
     Dates: start: 20170526
  2. SINGULAIR [Concomitant]
     Active Substance: MONTELUKAST SODIUM
     Dosage: 1 TABLET QD
     Route: 048
     Dates: start: 20131107
  3. EPINEPHRINE. [Concomitant]
     Active Substance: EPINEPHRINE
     Indication: ANAPHYLACTIC REACTION
     Dosage: 0.15 MG, PRN
     Route: 030
     Dates: start: 20170526
  4. SPIRONOLACTONE. [Concomitant]
     Active Substance: SPIRONOLACTONE
     Dosage: 12.5 MG, QD
     Route: 048
     Dates: start: 20150610
  5. ALBUTEROL [SALBUTAMOL SULFATE] [Concomitant]
     Dosage: 1 DF VIA NEB PRN
     Dates: start: 20150610
  6. QVAR [Concomitant]
     Active Substance: BECLOMETHASONE DIPROPIONATE
     Dosage: 2 PUFF BID
     Route: 055
     Dates: start: 20131122
  7. HEPARIN [Concomitant]
     Active Substance: HEPARIN SODIUM
     Indication: FLUSHING
     Dosage: 100 UN/ML AS DIRECTED
     Route: 042
     Dates: start: 20170526
  8. NORMAL SALINE [Concomitant]
     Active Substance: SODIUM CHLORIDE
     Indication: FLUSHING
     Dosage: 0.9% AS DIRECTED
     Route: 042
     Dates: start: 20170526
  9. CEREZYME [Suspect]
     Active Substance: IMIGLUCERASE
     Dosage: 2000 U, QOW
     Route: 041
  10. OMEPRAZOLE. [Concomitant]
     Active Substance: OMEPRAZOLE
     Dosage: 20 MG, BID
     Route: 048
     Dates: start: 20180215
  11. SODIUM CHLORIDE. [Concomitant]
     Active Substance: SODIUM CHLORIDE
     Indication: FLUSHING
     Dosage: 0.9% AS DIRECTED
     Route: 042
     Dates: start: 20170526
  12. STERILE WATER [Concomitant]
     Active Substance: WATER
     Dosage: 10 ML AS DIRECTED
     Route: 042
     Dates: start: 20170526
  13. LMX [LIDOCAINE] [Concomitant]
     Indication: PREMEDICATION
     Dosage: 4% PRIOR TO THE INFUSION
     Route: 061
     Dates: start: 20170523
  14. OXYGEN. [Concomitant]
     Active Substance: OXYGEN
     Dosage: 1 L/MIN NC CONT
     Dates: start: 20170523
  15. PEDIACARE FEVER REDUCER PAIN RELIEVER [Concomitant]
     Dosage: 5 ML, QD
     Route: 048
     Dates: start: 20150610

REACTIONS (1)
  - Throat irritation [Unknown]
